FAERS Safety Report 8994666 (Version 1)
Quarter: 2012Q4

REPORT INFORMATION
  Report Type: Spontaneous
  Country: US (occurrence: None)
  Receive Date: 20121221
  Receipt Date: 20121221
  Transmission Date: 20130627
  Serious: Yes (Hospitalization)
  Sender: FDA-Public Use
  Company Number: 54973 AE # 1137

PATIENT
  Age: 8 Month
  Sex: Male

DRUGS (1)
  1. HYLAND^S BABY TEETHING TABLETS [Suspect]
     Indication: TEETHING PAIN
     Route: 048

REACTIONS (5)
  - Pallor [None]
  - Pyrexia [None]
  - Dehydration [None]
  - Lethargy [None]
  - Crying [None]
